FAERS Safety Report 10044347 (Version 2)
Quarter: 2015Q2

REPORT INFORMATION
  Report Type: Report from Study
  Country: TW (occurrence: TW)
  Receive Date: 20140328
  Receipt Date: 20150401
  Transmission Date: 20150821
  Serious: Yes (Hospitalization)
  Sender: FDA-Public Use
  Company Number: TW-PFIZER INC-2014084854

PATIENT
  Age: 59 Year
  Sex: Male

DRUGS (8)
  1. BEVACIZUMAB [Suspect]
     Active Substance: BEVACIZUMAB
     Indication: COLORECTAL CANCER
     Dosage: 300 MG, CYCLIC, EVERY 2 WEEKS
     Route: 042
     Dates: start: 20131212, end: 20140117
  2. IRINOTECAN HCL [Suspect]
     Active Substance: IRINOTECAN HYDROCHLORIDE
     Dosage: 250 MG, CYCLIC, EVERY 2 WEEKS
     Route: 042
     Dates: start: 20140305
  3. MEGESTAT [Concomitant]
     Active Substance: MEGESTROL ACETATE
     Indication: CACHEXIA
     Dosage: 5 CC, 3X/DAY
     Route: 048
     Dates: start: 20131218
  4. FLUOROURACIL. [Suspect]
     Active Substance: FLUOROURACIL
     Dosage: 4315 MG, CYCLIC, EVERY 2 WEEKS
     Route: 042
     Dates: start: 20140305
  5. IRINOTECAN HCL [Suspect]
     Active Substance: IRINOTECAN HYDROCHLORIDE
     Indication: COLORECTAL CANCER
     Dosage: 250 MG, CYCLIC, EVERY 2 WEEKS
     Route: 042
     Dates: start: 20131211, end: 20140116
  6. FLUOROURACIL. [Suspect]
     Active Substance: FLUOROURACIL
     Indication: COLORECTAL CANCER
     Dosage: 4340 MG, CYCLIC, EVERY 2 WEEKS
     Route: 042
     Dates: start: 20131211, end: 20140116
  7. BEVACIZUMAB [Suspect]
     Active Substance: BEVACIZUMAB
     Dosage: 300 MG, CYCLIC, EVERY 2 WEEKS
     Route: 042
     Dates: start: 20140306
  8. CAPECITABINE. [Suspect]
     Active Substance: CAPECITABINE
     Indication: COLORECTAL CANCER
     Dosage: 1500 MG, 2X/DAY
     Route: 048
     Dates: start: 20140211, end: 20140224

REACTIONS (2)
  - Wound abscess [Recovered/Resolved]
  - Device related infection [Recovered/Resolved]

NARRATIVE: CASE EVENT DATE: 20140201
